FAERS Safety Report 11620778 (Version 3)
Quarter: 2015Q4

REPORT INFORMATION
  Report Type: Spontaneous
  Country: US (occurrence: US)
  Receive Date: 20151012
  Receipt Date: 20151216
  Transmission Date: 20160304
  Serious: Yes (Other)
  Sender: FDA-Public Use
  Company Number: US-SA-2015SA153338

PATIENT
  Sex: Male

DRUGS (9)
  1. SOLOSTAR [Concomitant]
     Active Substance: DEVICE
  2. LEVEMIR [Concomitant]
     Active Substance: INSULIN DETEMIR
  3. LANTUS SOLOSTAR [Concomitant]
     Active Substance: INSULIN GLARGINE
  4. TOUJEO [Suspect]
     Active Substance: INSULIN GLARGINE
     Indication: DIABETES MELLITUS
     Dosage: DOSE:10 UNIT(S)
     Route: 065
     Dates: start: 2015
  5. TOUJEO [Suspect]
     Active Substance: INSULIN GLARGINE
     Indication: DIABETES MELLITUS
     Dosage: DOSE:40 UNIT(S)
     Route: 065
     Dates: start: 2015
  6. LANTUS SOLOSTAR [Concomitant]
     Active Substance: INSULIN GLARGINE
  7. SOLOSTAR [Concomitant]
     Active Substance: DEVICE
  8. SOLOSTAR [Concomitant]
     Active Substance: DEVICE
     Dates: start: 2015
  9. SOLOSTAR [Concomitant]
     Active Substance: DEVICE
     Dates: start: 2015

REACTIONS (8)
  - Pruritus [Unknown]
  - Condition aggravated [Unknown]
  - Drug ineffective [Unknown]
  - Blood glucose abnormal [Unknown]
  - Vision blurred [Unknown]
  - Diabetic retinopathy [Unknown]
  - Glycosylated haemoglobin increased [Unknown]
  - Local swelling [Unknown]

NARRATIVE: CASE EVENT DATE: 2015
